FAERS Safety Report 7092230-8 (Version None)
Quarter: 2010Q4

REPORT INFORMATION
  Report Type: 
  Country: None (occurrence: None)
  Receive Date: 20101109
  Receipt Date: 20101103
  Transmission Date: 20110411
  Serious: Yes (Other)
  Sender: FDA-Public Use
  Company Number: DK-PFIZER INC-2010140379

PATIENT
  Age: 39 Year
  Sex: Male

DRUGS (2)
  1. ZELDOX [Suspect]
     Dosage: 240 MG DAILY
     Route: 048
     Dates: start: 20070915, end: 20080315
  2. PALIPERIDONE [Concomitant]
     Route: 048

REACTIONS (5)
  - ARTHROPATHY [None]
  - CARDIAC ARREST [None]
  - CARDIAC DISORDER [None]
  - MUSCLE DISORDER [None]
  - WEIGHT INCREASED [None]
